FAERS Safety Report 17487136 (Version 2)
Quarter: 2021Q4

REPORT INFORMATION
  Report Type: Other
  Country: US (occurrence: None)
  Receive Date: 20200303
  Receipt Date: 20211129
  Transmission Date: 20220303
  Serious: Yes (Other)
  Sender: FDA-Public Use
  Company Number: US-ROCHE-2556473

PATIENT
  Age: 56 Year
  Sex: Female
  Weight: 55.842 kg

DRUGS (2)
  1. OCREVUS [Suspect]
     Active Substance: OCRELIZUMAB
     Indication: Multiple sclerosis
     Dosage: 300 MG ONCE IN 2 WEEKS AND THEN 600 MG ONCE IN 6 MONTHS?FOR 1ST HALF INFUSION : 12/OCT/2021, FOR 2ND
     Route: 042
     Dates: start: 20200207
  2. LEVOTHYROXINE [Concomitant]
     Active Substance: LEVOTHYROXINE

REACTIONS (5)
  - Herpes virus infection [Not Recovered/Not Resolved]
  - Headache [Not Recovered/Not Resolved]
  - Infusion related reaction [Unknown]
  - Therapeutic response decreased [Recovered/Resolved]
  - Hypothyroidism [Not Recovered/Not Resolved]

NARRATIVE: CASE EVENT DATE: 20210201
